FAERS Safety Report 15189698 (Version 1)
Quarter: 2018Q3

REPORT INFORMATION
  Report Type: Report from Study
  Country: US (occurrence: US)
  Receive Date: 20180724
  Receipt Date: 20180724
  Transmission Date: 20181010
  Serious: Yes (Other)
  Sender: FDA-Public Use
  Company Number: US-AMGEN-USASL2018081180

PATIENT
  Age: 70 Year
  Sex: Female

DRUGS (1)
  1. REPATHA [Suspect]
     Active Substance: EVOLOCUMAB
     Indication: BLOOD CHOLESTEROL ABNORMAL
     Dosage: 140 MG, Q2WK
     Route: 065

REACTIONS (9)
  - Ear swelling [Recovered/Resolved]
  - Arthritis [Unknown]
  - Arthralgia [Unknown]
  - Ear pruritus [Recovered/Resolved]
  - Rash vesicular [Unknown]
  - Erythema [Recovered/Resolved]
  - Hip arthroplasty [Unknown]
  - Injection site pain [Unknown]
  - Rash pruritic [Unknown]

NARRATIVE: CASE EVENT DATE: 201805
